FAERS Safety Report 8121343-4 (Version None)
Quarter: 2012Q1

REPORT INFORMATION
  Report Type: 
  Country: None (occurrence: None)
  Receive Date: 20120203
  Receipt Date: 20120121
  Transmission Date: 20120608
  Serious: Yes (Other)
  Sender: FDA-Public Use
  Company Number: 2012AP000193

PATIENT
  Age: 70 Year
  Sex: Male

DRUGS (1)
  1. DONEPEZIL HCL [Suspect]
     Indication: PRODUCT USED FOR UNKNOWN INDICATION
     Dosage: 15 MG, QD

REACTIONS (2)
  - SOMATIC DELUSION [None]
  - NEURODERMATITIS [None]
